FAERS Safety Report 15665029 (Version 1)
Quarter: 2018Q4

REPORT INFORMATION
  Report Type: Spontaneous
  Country: US (occurrence: US)
  Receive Date: 20181116
  Receipt Date: 20181116
  Transmission Date: 20190205
  Serious: Yes (Hospitalization)
  Sender: FDA-Public Use
  Company Number: None

PATIENT
  Age: 71 Year
  Sex: Male

DRUGS (2)
  1. TEMOZOLOMIDE. [Concomitant]
     Active Substance: TEMOZOLOMIDE
  2. ONDANSETRON TAB 8MG [Suspect]
     Active Substance: ONDANSETRON
     Route: 048
     Dates: start: 201711

REACTIONS (3)
  - Fall [None]
  - Concussion [None]
  - Contusion [None]

NARRATIVE: CASE EVENT DATE: 20181115
